FAERS Safety Report 6871046-9 (Version None)
Quarter: 2010Q3

REPORT INFORMATION
  Report Type: 
  Country: None (occurrence: None)
  Receive Date: 20100723
  Receipt Date: 20100712
  Transmission Date: 20110219
  Serious: Yes (Other)
  Sender: FDA-Public Use
  Company Number: US-PFIZER INC-2008061125

PATIENT
  Sex: Female
  Weight: 66 kg

DRUGS (2)
  1. CHANTIX [Suspect]
     Indication: SMOKING CESSATION THERAPY
     Dosage: UNK
     Route: 048
     Dates: start: 20071213, end: 20071225
  2. VALSARTAN [Concomitant]
     Indication: BLOOD PRESSURE
     Dosage: UNK
     Dates: start: 20040101

REACTIONS (12)
  - ABNORMAL BEHAVIOUR [None]
  - AGGRESSION [None]
  - BACK INJURY [None]
  - DEPRESSION [None]
  - EMOTIONAL DISORDER [None]
  - HEAD INJURY [None]
  - HOSPITALISATION [None]
  - INJURY [None]
  - MOOD SWINGS [None]
  - NERVOUSNESS [None]
  - PANIC ATTACK [None]
  - SUICIDE ATTEMPT [None]
